FAERS Safety Report 7761550-3 (Version None)
Quarter: 2011Q3

REPORT INFORMATION
  Report Type: 
  Country: None (occurrence: None)
  Receive Date: 20110920
  Receipt Date: 20110907
  Transmission Date: 20111222
  Serious: Yes (Other)
  Sender: FDA-Public Use
  Company Number: US-RB-032136-11

PATIENT
  Age: 33 Year
  Sex: Female

DRUGS (3)
  1. SUBOXONE [Suspect]
     Route: 060
     Dates: start: 20110902, end: 20110903
  2. SUBOXONE [Suspect]
     Indication: DRUG DEPENDENCE
     Dosage: 8 MG DAILY
     Route: 060
     Dates: start: 20110904, end: 20110904
  3. SUBOXONE [Suspect]
     Dosage: 4 MG DAILY
     Route: 060
     Dates: start: 20110905, end: 20110905

REACTIONS (7)
  - VOMITING [None]
  - OFF LABEL USE [None]
  - DIARRHOEA [None]
  - WRONG TECHNIQUE IN DRUG USAGE PROCESS [None]
  - HEADACHE [None]
  - DEPRESSION SUICIDAL [None]
  - DRUG WITHDRAWAL SYNDROME [None]
